FAERS Safety Report 7512543-2 (Version None)
Quarter: 2011Q2

REPORT INFORMATION
  Report Type: 
  Country: None (occurrence: None)
  Receive Date: 20110531
  Receipt Date: 20110524
  Transmission Date: 20111010
  Serious: Yes (Hospitalization)
  Sender: FDA-Public Use
  Company Number: US-TEVA-283286USA

PATIENT
  Sex: Female

DRUGS (1)
  1. COPAXONE [Suspect]
     Indication: MULTIPLE SCLEROSIS
     Route: 058
     Dates: start: 20110123

REACTIONS (8)
  - CHEST PAIN [None]
  - PALPITATIONS [None]
  - PRURITUS GENERALISED [None]
  - ANXIETY [None]
  - CHILLS [None]
  - DYSPNOEA [None]
  - THROAT TIGHTNESS [None]
  - ARTHRALGIA [None]
